FAERS Safety Report 17112300 (Version 1)
Quarter: 2019Q4

REPORT INFORMATION
  Report Type: Spontaneous
  Country: JP (occurrence: JP)
  Receive Date: 20191204
  Receipt Date: 20191204
  Transmission Date: 20200122
  Serious: Yes (Other)
  Sender: FDA-Public Use
  Company Number: JP-PFIZER INC-2019518840

PATIENT
  Age: 40 Year
  Sex: Male

DRUGS (2)
  1. CELECOX [Suspect]
     Active Substance: CELECOXIB
  2. METHOTREXATE. [Suspect]
     Active Substance: METHOTREXATE
     Dosage: 200 MG, UNK
     Route: 048
     Dates: start: 20190729

REACTIONS (3)
  - Loss of consciousness [Unknown]
  - Memory impairment [Unknown]
  - Leukoencephalopathy [Unknown]
